FAERS Safety Report 7100321-8 (Version None)
Quarter: 2010Q4

REPORT INFORMATION
  Report Type: 
  Country: None (occurrence: None)
  Receive Date: 20101112
  Receipt Date: 20101109
  Transmission Date: 20110411
  Serious: Yes (Hospitalization, Other)
  Sender: FDA-Public Use
  Company Number: BR-ABBOTT-09P-020-0612038-00

PATIENT
  Sex: Male
  Weight: 55 kg

DRUGS (8)
  1. HUMIRA [Suspect]
     Indication: CROHN'S DISEASE
     Dosage: 160 MG LOADING DOSE
     Route: 058
     Dates: start: 20091101, end: 20091101
  2. HUMIRA [Suspect]
     Dosage: 80 MG LOADING DOSE
     Route: 058
     Dates: start: 20100127, end: 20100601
  3. HUMIRA [Suspect]
     Dates: end: 20100601
  4. HUMIRA [Suspect]
  5. CORTISONE [Concomitant]
     Indication: PAIN
     Route: 048
     Dates: start: 20090601
  6. CIPRO [Concomitant]
     Indication: CROHN'S DISEASE
     Route: 048
     Dates: start: 20091201
  7. AZATHIOPRINE [Concomitant]
     Indication: CROHN'S DISEASE
     Route: 048
     Dates: start: 20091201
  8. METRONIDAZOLE [Concomitant]
     Indication: CROHN'S DISEASE
     Route: 048
     Dates: start: 20091201

REACTIONS (4)
  - FATIGUE [None]
  - FISTULA [None]
  - FISTULA DISCHARGE [None]
  - GASTROINTESTINAL FISTULA [None]
